FAERS Safety Report 9517963 (Version 1)
Quarter: 2013Q3

REPORT INFORMATION
  Report Type: Spontaneous
  Country: US (occurrence: US)
  Receive Date: 20130912
  Receipt Date: 20130912
  Transmission Date: 20140515
  Serious: No
  Sender: FDA-Public Use
  Company Number: US-PFIZER INC-2013258344

PATIENT
  Age: 78 Year
  Sex: Female

DRUGS (2)
  1. SUTENT [Suspect]
     Indication: RENAL CANCER
     Dosage: 12.5 MG, UNK
     Dates: start: 20111118
  2. LEVAQUIN [Concomitant]
     Dosage: UNK

REACTIONS (2)
  - Dysphagia [Unknown]
  - Oropharyngeal pain [Unknown]
